FAERS Safety Report 7937676-8 (Version None)
Quarter: 2011Q4

REPORT INFORMATION
  Report Type: 
  Country: None (occurrence: None)
  Receive Date: 20111123
  Receipt Date: 20111116
  Transmission Date: 20120403
  Serious: Yes (Life-Threatening, Hospitalization, Other)
  Sender: FDA-Public Use
  Company Number: PHHY2011CA101098

PATIENT
  Sex: Female

DRUGS (14)
  1. DOCUSATE [Concomitant]
     Indication: CONSTIPATION PROPHYLAXIS
     Dosage: 100 MG, BID
     Route: 048
     Dates: start: 20000101, end: 20111103
  2. NITROGLYCERIN [Concomitant]
     Indication: RAYNAUD'S PHENOMENON
     Dosage: UNK UKN, PRN
     Route: 061
     Dates: start: 20060101, end: 20111103
  3. INNOHEP [Concomitant]
     Indication: ANTIPHOSPHOLIPID SYNDROME
     Dosage: 1100 IU, ONCE/SINGLE
     Route: 058
     Dates: start: 19990101, end: 20111103
  4. NITRO-DUR [Concomitant]
     Indication: RAYNAUD'S PHENOMENON
     Dosage: 0.4 MG, UNK
     Route: 062
     Dates: start: 20080506, end: 20111103
  5. BELIMUMAB [Suspect]
     Indication: SYSTEMIC LUPUS ERYTHEMATOSUS
     Dosage: 10 MG/KG, 1 IN 28 DAYS
     Route: 042
     Dates: start: 20090831
  6. NORVASC [Concomitant]
     Indication: RAYNAUD'S PHENOMENON
     Dosage: 10 MG, ONCE/SINGLE
     Route: 048
     Dates: start: 20080116, end: 20111103
  7. PLAQUENIL [Concomitant]
     Indication: SYSTEMIC LUPUS ERYTHEMATOSUS
     Dosage: 400 MG, ONCE/SINGLE
     Route: 048
     Dates: start: 19910101, end: 20111103
  8. OXYGEN [Concomitant]
  9. PENTOXIFYLLINE [Concomitant]
     Indication: RAYNAUD'S PHENOMENON
     Dosage: 400 MG, BID
     Route: 048
     Dates: start: 20080606, end: 20111103
  10. MYFORTIC [Suspect]
     Indication: VASCULITIS
     Dosage: 720 MG, ONCE/SINGLE
     Route: 048
     Dates: start: 20081102, end: 20111103
  11. ACETYLSALICYLIC ACID SRT [Concomitant]
     Indication: ANTIPHOSPHOLIPID SYNDROME
     Dosage: 80 MG, ONCE/SINGLE
     Route: 048
     Dates: start: 19910101, end: 20111103
  12. CALCIUM [Concomitant]
     Indication: OSTEOPOROSIS PROPHYLAXIS
     Dosage: 500 MG, BID
     Route: 048
     Dates: start: 20030101, end: 20111103
  13. LUMIGAN [Concomitant]
     Indication: GLAUCOMA
     Dosage: UNK UKN,1 GTT
     Route: 047
     Dates: start: 20080121, end: 20111103
  14. CEFTRIAXONE [Concomitant]
     Dosage: UNK UKN, UNK

REACTIONS (28)
  - PYREXIA [None]
  - CHILLS [None]
  - PULMONARY ARTERIAL PRESSURE INCREASED [None]
  - OXYGEN SATURATION DECREASED [None]
  - LUNG CONSOLIDATION [None]
  - TRICUSPID VALVE INCOMPETENCE [None]
  - LYMPH NODE CALCIFICATION [None]
  - DIARRHOEA [None]
  - PROTHROMBIN TIME PROLONGED [None]
  - INTERNATIONAL NORMALISED RATIO INCREASED [None]
  - PULMONARY GRANULOMA [None]
  - UPPER RESPIRATORY TRACT INFECTION [None]
  - PNEUMONIA [None]
  - BRONCHIAL SECRETION RETENTION [None]
  - ATELECTASIS [None]
  - RHINOVIRUS INFECTION [None]
  - INFLUENZA [None]
  - DYSPNOEA [None]
  - CLOSTRIDIAL INFECTION [None]
  - BLOOD GASES ABNORMAL [None]
  - HYPOXIA [None]
  - ASTHENIA [None]
  - MALAISE [None]
  - PULMONARY HAEMORRHAGE [None]
  - ACUTE RESPIRATORY DISTRESS SYNDROME [None]
  - PLEURITIC PAIN [None]
  - PULMONARY OEDEMA [None]
  - PLEURAL EFFUSION [None]
